FAERS Safety Report 13917898 (Version 4)
Quarter: 2017Q4

REPORT INFORMATION
  Report Type: Report from Study
  Country: US (occurrence: US)
  Receive Date: 20170829
  Receipt Date: 20171002
  Transmission Date: 20180320
  Serious: Yes (Other)
  Sender: FDA-Public Use
  Company Number: US-TEVA-800882USA

PATIENT
  Age: 25 Year
  Sex: Female

DRUGS (3)
  1. CLARAVIS [Suspect]
     Active Substance: ISOTRETINOIN
     Dosage: 40 MILLIGRAM DAILY;
     Route: 048
     Dates: start: 20170103, end: 20170712
  2. MIRENA [Suspect]
     Active Substance: LEVONORGESTREL
     Route: 065
  3. PARAGARD T 380A [Suspect]
     Active Substance: COPPER
     Route: 065

REACTIONS (4)
  - Unintended pregnancy [Unknown]
  - Maternal exposure before pregnancy [Unknown]
  - Ectopic pregnancy [Recovered/Resolved]
  - Abortion spontaneous [Recovered/Resolved]

NARRATIVE: CASE EVENT DATE: 20170817
